FAERS Safety Report 5484695-X (Version None)
Quarter: 2007Q4

REPORT INFORMATION
  Report Type: 
  Country: None (occurrence: None)
  Receive Date: 20071012
  Receipt Date: 20071002
  Transmission Date: 20080405
  Serious: Yes (Hospitalization)
  Sender: FDA-Public Use
  Company Number: JP-PFIZER INC-2007077511

PATIENT
  Sex: Female

DRUGS (1)
  1. SULPERAZON [Suspect]
     Indication: URINARY TRACT INFECTION
     Route: 042
     Dates: start: 20070906, end: 20070912

REACTIONS (1)
  - HYPOPROTHROMBINAEMIA [None]
